FAERS Safety Report 9838243 (Version 1)
Quarter: 2014Q1

REPORT INFORMATION
  Report Type: Spontaneous
  Country: US (occurrence: US)
  Receive Date: 20140123
  Receipt Date: 20140123
  Transmission Date: 20141002
  Serious: Yes (Life-Threatening, Hospitalization)
  Sender: FDA-Public Use
  Company Number: US-MYLANLABS-2014S1000927

PATIENT
  Age: 60 Year
  Sex: Male

DRUGS (4)
  1. FENTANYL [Suspect]
     Indication: PAIN
     Route: 062
  2. AZACITIDINE [Concomitant]
     Indication: PRODUCT USED FOR UNKNOWN INDICATION
  3. HYDROXYCARBAMIDE [Concomitant]
     Indication: PRURITUS
  4. HYDROXYCARBAMIDE [Concomitant]
     Indication: DYSPNOEA

REACTIONS (7)
  - Incorrect route of drug administration [Recovered/Resolved]
  - Overdose [Recovered/Resolved]
  - Mental impairment [Recovered/Resolved]
  - Tonic convulsion [Recovered/Resolved]
  - Renal failure [Unknown]
  - Thrombocytopenia [Unknown]
  - Asphyxia [Recovered/Resolved]
